FAERS Safety Report 10066710 (Version 1)
Quarter: 2014Q2

REPORT INFORMATION
  Report Type: Spontaneous
  Country: US (occurrence: US)
  Receive Date: 20140408
  Receipt Date: 20140408
  Transmission Date: 20141212
  Serious: No
  Sender: FDA-Public Use
  Company Number: US-B.I. PHARMACEUTICALS,INC./RIDGEFIELD-2014-BI-13375BP

PATIENT
  Sex: Female
  Weight: 77.11 kg

DRUGS (3)
  1. SPIRIVA [Suspect]
     Indication: HEART VALVE INCOMPETENCE
     Dosage: 18 MCG
     Route: 055
     Dates: start: 2013
  2. ALBUTEROL [Concomitant]
     Dosage: FORMULATION: INHALATION SPRAY
     Route: 055
  3. QVAR [Concomitant]
     Dosage: FORMULATION: INHALATION SPRAY
     Route: 055

REACTIONS (4)
  - Cellulitis [Not Recovered/Not Resolved]
  - Herpes zoster [Recovered/Resolved]
  - Fall [Recovered/Resolved]
  - Off label use [Unknown]
